FAERS Safety Report 4325841-0 (Version None)
Quarter: 2004Q1

REPORT INFORMATION
  Report Type: 
  Country: None (occurrence: None)
  Receive Date: 20040329
  Receipt Date: 20040319
  Transmission Date: 20041129
  Serious: Yes (Disabling)
  Sender: FDA-Public Use
  Company Number: JP-ROCHE-362294

PATIENT
  Age: 19 Year
  Sex: Male
  Weight: 57.2 kg

DRUGS (9)
  1. VESANOID [Suspect]
     Route: 048
     Dates: start: 20020627, end: 20020710
  2. VESANOID [Suspect]
     Route: 048
     Dates: start: 20020723, end: 20020825
  3. FOY [Concomitant]
     Dates: start: 20020627, end: 20020709
  4. FUTHAN [Concomitant]
     Dates: start: 20020610, end: 20020702
  5. MODACIN [Concomitant]
     Dates: start: 20020628, end: 20020702
  6. TOBRACIN [Concomitant]
     Dates: start: 20020628, end: 20020702
  7. ZANTAC [Concomitant]
     Route: 048
     Dates: start: 20020628, end: 20020815
  8. DIFLUCAN [Concomitant]
     Route: 048
     Dates: start: 20020628, end: 20020815
  9. CRAVIT [Concomitant]
     Route: 048
     Dates: start: 20020713, end: 20020815

REACTIONS (2)
  - BIOPSY BONE MARROW ABNORMAL [None]
  - HISTIOCYTOSIS HAEMATOPHAGIC [None]
